FAERS Safety Report 24754172 (Version 1)
Quarter: 2024Q4

REPORT INFORMATION
  Report Type: Report from Study
  Country: US (occurrence: US)
  Receive Date: 20241219
  Receipt Date: 20241219
  Transmission Date: 20250114
  Serious: Yes (Hospitalization)
  Sender: UCB
  Company Number: US-UCBSA-2024060066

PATIENT
  Age: 19 Year
  Sex: Male

DRUGS (2)
  1. FINTEPLA [Suspect]
     Active Substance: FENFLURAMINE
     Indication: Severe myoclonic epilepsy of infancy
     Dosage: 4.5 MILLILITER, 2X/DAY (BID)
     Dates: start: 20201008
  2. FINTEPLA [Suspect]
     Active Substance: FENFLURAMINE
     Dosage: 4.5 MILLILITER, 2X/DAY (BID)

REACTIONS (4)
  - Catatonia [Not Recovered/Not Resolved]
  - Mental impairment [Not Recovered/Not Resolved]
  - Soliloquy [Not Recovered/Not Resolved]
  - Communication disorder [Not Recovered/Not Resolved]

NARRATIVE: CASE EVENT DATE: 20241016
